FAERS Safety Report 7649919-9 (Version None)
Quarter: 2011Q3

REPORT INFORMATION
  Report Type: 
  Country: None (occurrence: None)
  Receive Date: 20110802
  Receipt Date: 20110728
  Transmission Date: 20111222
  Serious: Yes (Hospitalization, Other)
  Sender: FDA-Public Use
  Company Number: SE-PFIZER INC-2011172220

PATIENT
  Age: 50 Year
  Sex: Male
  Weight: 85 kg

DRUGS (4)
  1. CIPROFLOXACIN [Concomitant]
     Indication: APPENDIX DISORDER
     Dosage: 500 MG, 2X/DAY
     Route: 048
  2. METRONIDAZOLE [Suspect]
     Dosage: 1 G, 1X/DAY
     Route: 042
  3. METRONIDAZOLE [Suspect]
     Indication: APPENDIX DISORDER
     Dosage: 400 MG, 3X/DAY
     Route: 048
  4. CEFOTAXIME [Concomitant]
     Indication: APPENDIX DISORDER
     Dosage: 1 G, 3X/DAY
     Route: 042

REACTIONS (1)
  - ENCEPHALOPATHY [None]
